FAERS Safety Report 20606899 (Version 3)
Quarter: 2022Q1

REPORT INFORMATION
  Report Type: Spontaneous
  Country: US (occurrence: US)
  Receive Date: 20220317
  Receipt Date: 20220331
  Transmission Date: 20220424
  Serious: Yes (Other)
  Sender: FDA-Public Use
  Company Number: US-Accord-257582

PATIENT
  Sex: Female

DRUGS (1)
  1. TOPIRAMATE [Suspect]
     Active Substance: TOPIRAMATE
     Indication: Migraine
     Dosage: TOPIRAMATE WAS RESTARTED BRIEFLY IN 2018
     Dates: start: 2015

REACTIONS (5)
  - Blood bicarbonate decreased [Recovered/Resolved]
  - Amino acid level increased [Not Recovered/Not Resolved]
  - Renal tubular acidosis [Unknown]
  - Renal tubular dysfunction [Unknown]
  - Unmasking of previously unidentified disease [Unknown]
